FAERS Safety Report 6072941-3 (Version None)
Quarter: 2009Q1

REPORT INFORMATION
  Report Type: 
  Country: None (occurrence: None)
  Receive Date: 20090206
  Receipt Date: 20090122
  Transmission Date: 20090719
  Serious: Yes (Other)
  Sender: FDA-Public Use
  Company Number: 2009S1001336

PATIENT
  Age: 52 Year
  Sex: Female

DRUGS (5)
  1. FENTANYL TRANSDERMAL SYSTEM [Suspect]
     Indication: CANCER PAIN
     Dosage: 100 UG; EVERY HOUR; TRANSDERMAL
     Route: 062
     Dates: start: 20080101, end: 20090103
  2. NORCO [Concomitant]
  3. PRILOSEC [Concomitant]
  4. XANAX [Concomitant]
  5. TARCEVA [Concomitant]

REACTIONS (10)
  - APPARENT DEATH [None]
  - CYANOSIS [None]
  - DEPRESSED LEVEL OF CONSCIOUSNESS [None]
  - DIARRHOEA [None]
  - DRUG WITHDRAWAL SYNDROME [None]
  - HYPERTENSION [None]
  - RESPIRATION ABNORMAL [None]
  - SOMNOLENCE [None]
  - SWELLING FACE [None]
  - VOMITING [None]
